FAERS Safety Report 4508554-1 (Version None)
Quarter: 2004Q4

REPORT INFORMATION
  Report Type: 
  Country: None (occurrence: None)
  Receive Date: 20041123
  Receipt Date: 20040329
  Transmission Date: 20050328
  Serious: No
  Sender: FDA-Public Use
  Company Number: US-GLAXOSMITHKLINE-A0505262A

PATIENT
  Sex: Female

DRUGS (1)
  1. WELLBUTRIN SR [Suspect]
     Indication: DRUG USE FOR UNKNOWN INDICATION
     Route: 048
     Dates: start: 20040101

REACTIONS (10)
  - CHEST DISCOMFORT [None]
  - DYSPNOEA [None]
  - EYE PRURITUS [None]
  - EYE REDNESS [None]
  - HYPERSENSITIVITY [None]
  - NASAL DISCOMFORT [None]
  - PRURITUS [None]
  - SNEEZING [None]
  - SOMNOLENCE [None]
  - THROAT IRRITATION [None]
